FAERS Safety Report 7576320-9 (Version None)
Quarter: 2011Q2

REPORT INFORMATION
  Report Type: 
  Country: None (occurrence: None)
  Receive Date: 20110628
  Receipt Date: 20110615
  Transmission Date: 20111010
  Serious: Yes (Hospitalization)
  Sender: FDA-Public Use
  Company Number: JP-ELI_LILLY_AND_COMPANY-JP201106004838

PATIENT
  Sex: Female

DRUGS (2)
  1. FORTEO [Suspect]
     Dosage: UNK
     Route: 058
     Dates: start: 20110219
  2. FORTEO [Suspect]
     Dosage: UNK
     Route: 058
     Dates: start: 20110615

REACTIONS (2)
  - INTENTIONAL DRUG MISUSE [None]
  - HOSPITALISATION [None]
